FAERS Safety Report 16640669 (Version 1)
Quarter: 2019Q3

REPORT INFORMATION
  Report Type: Spontaneous
  Country: US (occurrence: US)
  Receive Date: 20190729
  Receipt Date: 20190729
  Transmission Date: 20191004
  Serious: Yes (Other)
  Sender: FDA-Public Use
  Company Number: US-STRIDES ARCOLAB LIMITED-2018SP009451

PATIENT
  Age: 62 Year
  Sex: Male

DRUGS (2)
  1. MYCOPHENOLATE MOFETIL. [Suspect]
     Active Substance: MYCOPHENOLATE MOFETIL
     Indication: RENAL TRANSPLANT
     Dosage: 250 MG, BID
     Route: 048
  2. CYCLOSPORINE. [Suspect]
     Active Substance: CYCLOSPORINE
     Indication: RENAL TRANSPLANT
     Dosage: 125 MG, BID
     Route: 048

REACTIONS (7)
  - Impaired work ability [Recovered/Resolved]
  - Skin lesion [Recovered/Resolved]
  - Squamous cell carcinoma [Recovered/Resolved]
  - Skin hyperpigmentation [Recovered/Resolved]
  - Tenderness [Recovered/Resolved]
  - Nail pigmentation [Recovered/Resolved]
  - Hyperkeratosis [Recovered/Resolved]
